FAERS Safety Report 7080114-0 (Version None)
Quarter: 2010Q4

REPORT INFORMATION
  Report Type: 
  Country: None (occurrence: None)
  Receive Date: 20101102
  Receipt Date: 20101025
  Transmission Date: 20110411
  Serious: Yes (Other)
  Sender: FDA-Public Use
  Company Number: PHBS2005BR11949

PATIENT
  Sex: Female
  Weight: 92 kg

DRUGS (13)
  1. FORADIL [Suspect]
     Indication: ASTHMA
     Dosage: 12 UG, QD, PRN, IN MORNING
     Dates: start: 20010101
  2. FORADIL [Suspect]
     Indication: EMPHYSEMA
     Dosage: 12 UG, BID
  3. FORASEQ [Suspect]
  4. SYNTHROID [Concomitant]
     Indication: HYPOTHYROIDISM
     Dosage: 50 UG, QD
     Route: 048
     Dates: start: 20050501, end: 20060701
  5. PURAN T4 [Concomitant]
     Indication: THYROID DISORDER
     Dosage: ONE TABLET DAILY IN FASTING
     Route: 048
     Dates: start: 20060701
  6. GEMFIBROZIL [Concomitant]
     Indication: BLOOD TRIGLYCERIDES
     Dosage: 600 MG ONCE AT NIGHT
     Route: 048
     Dates: start: 19960101
  7. ASPIRIN [Concomitant]
     Indication: PROMOTION OF PERIPHERAL CIRCULATION
     Dosage: 100 MG AFTER LUNCH
     Route: 048
     Dates: start: 20041101
  8. LOSARTAN POTASSIUM [Concomitant]
     Indication: HYPERTENSION
     Dosage: 1 TABLET AFTER BREAKFAST
     Route: 048
  9. LEXOTAN [Concomitant]
     Indication: ANXIETY
     Dosage: 3 MG/DAY
     Route: 048
  10. COROS H [Concomitant]
     Indication: HYPERTENSION
     Dosage: 50 MG, QD
     Route: 048
  11. DIGOXIN [Concomitant]
     Dosage: ONE TABLET AFTER BREAKFAST
     Route: 048
  12. MIODOL [Concomitant]
     Indication: TACHYCARDIA
     Dosage: ONE TABLET AT NIGHT
  13. BAMIFIX [Concomitant]
     Indication: DYSPNOEA
     Dosage: 200 MG, BID (8AM AND 8PM)
     Route: 048

REACTIONS (18)
  - ANXIETY [None]
  - CARDIAC DISORDER [None]
  - CARDIOMEGALY [None]
  - CHEST DISCOMFORT [None]
  - COUGH [None]
  - DYSPNOEA [None]
  - DYSURIA [None]
  - ECHOCARDIOGRAM ABNORMAL [None]
  - EMPHYSEMA [None]
  - FATIGUE [None]
  - INFLUENZA [None]
  - MEDICATION RESIDUE [None]
  - MENTAL DISORDER [None]
  - MUSCULOSKELETAL DISCOMFORT [None]
  - PALPITATIONS [None]
  - TACHYCARDIA [None]
  - THROAT IRRITATION [None]
  - TREMOR [None]
